FAERS Safety Report 5213779-6 (Version None)
Quarter: 2007Q1

REPORT INFORMATION
  Report Type: 
  Country: None (occurrence: None)
  Receive Date: 20070119
  Receipt Date: 20070109
  Transmission Date: 20070707
  Serious: Yes (Hospitalization, Other)
  Sender: FDA-Public Use
  Company Number: US-PFIZER INC-2006131304

PATIENT
  Sex: Female
  Weight: 77.1 kg

DRUGS (12)
  1. CHANTIX [Suspect]
     Indication: SMOKING CESSATION THERAPY
     Dates: start: 20060927, end: 20061018
  2. MORPHINE [Suspect]
  3. ALL OTHER THERAPEUTIC PRODUCTS [Concomitant]
  4. ASPIRIN [Concomitant]
  5. PROCARDIA XL [Concomitant]
  6. ACCUPRIL [Concomitant]
  7. ZOCOR [Concomitant]
  8. NEXIUM [Concomitant]
  9. ZELNORM [Concomitant]
  10. SPIRIVA ^PFIZER^ [Concomitant]
  11. ADVAIR DISKUS 100/50 [Concomitant]
  12. REQUIP [Concomitant]

REACTIONS (9)
  - CAROTID ARTERY DISEASE [None]
  - CHEST PAIN [None]
  - FEELING ABNORMAL [None]
  - GASTROOESOPHAGEAL REFLUX DISEASE [None]
  - HYPERSENSITIVITY [None]
  - NERVOUSNESS [None]
  - PERIPHERAL VASCULAR DISORDER [None]
  - THROMBOSIS [None]
  - TREMOR [None]
